FAERS Safety Report 9214431 (Version 2)
Quarter: 2013Q4

REPORT INFORMATION
  Report Type: Spontaneous
  Country: US (occurrence: US)
  Receive Date: 20130405
  Receipt Date: 20131204
  Transmission Date: 20140711
  Serious: Yes (Other)
  Sender: FDA-Public Use
  Company Number: US-BAYER-2013-040517

PATIENT
  Age: 25 Year
  Sex: Female

DRUGS (2)
  1. YAZ [Suspect]
     Indication: ACNE
  2. VITAMIN D3 [Concomitant]
     Dosage: 2000 UNIT CAPSULE - 1 DAILY
     Route: 048

REACTIONS (4)
  - Cholecystitis [None]
  - Injury [None]
  - Pain [None]
  - Pain [None]
